FAERS Safety Report 6804760-1 (Version None)
Quarter: 2010Q2

REPORT INFORMATION
  Report Type: 
  Country: None (occurrence: None)
  Receive Date: 20100628
  Receipt Date: 20070502
  Transmission Date: 20101027
  Serious: Yes (Other)
  Sender: FDA-Public Use
  Company Number: US-PFIZER INC-2007035778

PATIENT
  Sex: Female
  Weight: 68 kg

DRUGS (4)
  1. GEODON [Suspect]
     Indication: BIPOLAR II DISORDER
     Dates: start: 20070423
  2. LITHIUM [Concomitant]
  3. KLONOPIN [Concomitant]
  4. ESTROGENS [Concomitant]

REACTIONS (5)
  - DYSPNOEA [None]
  - HYPERSENSITIVITY [None]
  - HYPERTENSION [None]
  - MYDRIASIS [None]
  - RESTLESSNESS [None]
